FAERS Safety Report 9362942 (Version 1)
Quarter: 2013Q2

REPORT INFORMATION
  Report Type: Spontaneous
  Country: ES (occurrence: ES)
  Receive Date: 20130624
  Receipt Date: 20130624
  Transmission Date: 20140414
  Serious: Yes (Other)
  Sender: FDA-Public Use
  Company Number: ES-ROCHE-1239500

PATIENT
  Age: 49 Year
  Sex: Male

DRUGS (3)
  1. PEGASYS [Suspect]
     Indication: HEPATITIS C
     Route: 048
     Dates: start: 20130125
  2. COPEGUS [Suspect]
     Indication: HEPATITIS C
     Route: 048
     Dates: start: 20130120
  3. INCIVO [Suspect]
     Indication: HEPATITIS C
     Route: 048
     Dates: start: 20130125, end: 20130413

REACTIONS (4)
  - Pruritus allergic [Recovered/Resolved]
  - Haemorrhoids [Recovered/Resolved]
  - Haematoma [Recovered/Resolved]
  - Rash [Recovered/Resolved]
